FAERS Safety Report 25615663 (Version 1)
Quarter: 2025Q3

REPORT INFORMATION
  Report Type: Spontaneous
  Country: US (occurrence: US)
  Receive Date: 20250729
  Receipt Date: 20250729
  Transmission Date: 20251021
  Serious: Yes (Life-Threatening, Hospitalization)
  Sender: ACCORD
  Company Number: US-MLMSERVICE-20250711-PI572252-00121-1

PATIENT
  Age: 77 Year
  Sex: Male

DRUGS (9)
  1. DILTIAZEM [Suspect]
     Active Substance: DILTIAZEM
     Indication: Product used for unknown indication
  2. ALBUTEROL [Concomitant]
     Active Substance: ALBUTEROL
  3. BUDESONIDE,GLYCOPYRROLATE,FORMOTEROL FUMARATE [Concomitant]
  4. LISINOPRIL [Concomitant]
     Active Substance: LISINOPRIL
  5. METOPROLOL [Concomitant]
     Active Substance: METOPROLOL
  6. OXYGEN [Concomitant]
     Active Substance: OXYGEN
     Indication: Chronic obstructive pulmonary disease
  7. RANOLAZINE [Concomitant]
     Active Substance: RANOLAZINE
  8. TAMSULOSIN [Concomitant]
     Active Substance: TAMSULOSIN
  9. TORSEMIDE [Concomitant]
     Active Substance: TORSEMIDE

REACTIONS (8)
  - Respiratory failure [Recovering/Resolving]
  - Ventilation perfusion mismatch [Recovering/Resolving]
  - Pneumonia [Recovering/Resolving]
  - Blood creatinine increased [Unknown]
  - Hypoxia [Recovering/Resolving]
  - Agitation [Unknown]
  - Bronchomalacia [Unknown]
  - Tracheomalacia [Unknown]
